FAERS Safety Report 5724991-1 (Version None)
Quarter: 2008Q2

REPORT INFORMATION
  Report Type: 
  Country: None (occurrence: None)
  Receive Date: 20080430
  Receipt Date: 20080430
  Transmission Date: 20081010
  Serious: Yes (Other)
  Sender: FDA-Public Use
  Company Number: None

PATIENT
  Age: 61 Year
  Sex: Female
  Weight: 133.8111 kg

DRUGS (2)
  1. DIGOXIN [Suspect]
     Indication: ATRIAL FIBRILLATION
     Dosage: 1 TAB DAY PO
     Route: 048
  2. DIGOXIN [Suspect]
     Indication: CARDIAC FAILURE CONGESTIVE
     Dosage: 1 TAB DAY PO
     Route: 048

REACTIONS (12)
  - ASTHENIA [None]
  - BLOOD PRESSURE DECREASED [None]
  - COUGH [None]
  - DISORIENTATION [None]
  - FATIGUE [None]
  - INFLUENZA [None]
  - INSOMNIA [None]
  - PHARMACEUTICAL PRODUCT COMPLAINT [None]
  - PYREXIA [None]
  - RETCHING [None]
  - STOMACH DISCOMFORT [None]
  - TINNITUS [None]
